FAERS Safety Report 5929979-3 (Version None)
Quarter: 2008Q4

REPORT INFORMATION
  Report Type: 
  Country: None (occurrence: None)
  Receive Date: 20081024
  Receipt Date: 20081012
  Transmission Date: 20090506
  Serious: Yes (Other)
  Sender: FDA-Public Use
  Company Number: US-PFIZER INC-2008075075

PATIENT
  Sex: Male
  Weight: 111.1 kg

DRUGS (10)
  1. CHANTIX [Suspect]
     Indication: SMOKING CESSATION THERAPY
     Route: 048
     Dates: start: 20080831
  2. DARVOCET [Suspect]
     Indication: JOINT INJURY
  3. TRAZODONE HCL [Concomitant]
  4. ASTELIN [Concomitant]
  5. RHINOCORT [Concomitant]
     Indication: NASAL SEPTUM DEVIATION
  6. METOPROLOL TARTRATE [Concomitant]
     Indication: HYPERTENSION
  7. DIAZEPAM [Concomitant]
  8. CITALOPRAM HYDROBROMIDE [Concomitant]
  9. NEXIUM [Concomitant]
  10. SKELAXIN [Concomitant]

REACTIONS (30)
  - ABNORMAL DREAMS [None]
  - ACTIVITIES OF DAILY LIVING IMPAIRED [None]
  - ANGER [None]
  - BLOOD CHOLESTEROL INCREASED [None]
  - BLOOD GLUCOSE INCREASED [None]
  - COUGH [None]
  - DEPRESSION [None]
  - DIABETES MELLITUS [None]
  - DIZZINESS [None]
  - DYSGEUSIA [None]
  - EAR INFECTION [None]
  - EMOTIONAL DISORDER [None]
  - FATIGUE [None]
  - HYPERPHAGIA [None]
  - INSOMNIA [None]
  - KNEE OPERATION [None]
  - LIGAMENT OPERATION [None]
  - MEDICATION ERROR [None]
  - MEMORY IMPAIRMENT [None]
  - NAUSEA [None]
  - NERVOUSNESS [None]
  - PAIN [None]
  - PSYCHIATRIC SYMPTOM [None]
  - SOMNOLENCE [None]
  - STRESS [None]
  - TOBACCO USER [None]
  - TREMOR [None]
  - VERTIGO [None]
  - WEIGHT DECREASED [None]
  - WITHDRAWAL SYNDROME [None]
